FAERS Safety Report 24567413 (Version 1)
Quarter: 2024Q4

REPORT INFORMATION
  Report Type: Report from Study
  Country: US (occurrence: US)
  Receive Date: 20241030
  Receipt Date: 20241030
  Transmission Date: 20250115
  Serious: Yes (Other)
  Sender: PFIZER
  Company Number: US-PFIZER INC-PV202400139856

PATIENT
  Age: 63 Year
  Sex: Female

DRUGS (4)
  1. IBRANCE [Suspect]
     Active Substance: PALBOCICLIB
     Indication: Breast cancer
     Dosage: 125MG TABLET ONCE DAILY FOR 21 DAYS ON, 7 DAYS OFF FOR 28 DAY CYCLE
     Route: 048
     Dates: start: 201607, end: 202311
  2. IBRANCE [Suspect]
     Active Substance: PALBOCICLIB
     Dosage: UNK UNK, CYCLIC
     Dates: start: 202405
  3. IBRANCE [Suspect]
     Active Substance: PALBOCICLIB
     Dosage: 100MG TABLET ONCE DAILY FOR 21 DAYS ON, 7 DAYS OFF FOR 28 DAY CYCLE
     Route: 048
     Dates: start: 202410
  4. LETROZOLE [Concomitant]
     Active Substance: LETROZOLE
     Dosage: UNK

REACTIONS (5)
  - Haemolytic anaemia [Unknown]
  - Red blood cell count decreased [Unknown]
  - White blood cell count decreased [Unknown]
  - Off label use [Unknown]
  - Product use issue [Unknown]

NARRATIVE: CASE EVENT DATE: 20240501
